FAERS Safety Report 7948758-9 (Version None)
Quarter: 2011Q4

REPORT INFORMATION
  Report Type: 
  Country: None (occurrence: None)
  Receive Date: 20111123
  Receipt Date: 20111114
  Transmission Date: 20120403
  Serious: Yes (Life-Threatening, Hospitalization, Other)
  Sender: FDA-Public Use
  Company Number: 2011MA016422

PATIENT
  Age: 22 Year
  Sex: Female

DRUGS (1)
  1. FEVERALL [Suspect]
     Dosage: 15 GR; 1X;

REACTIONS (11)
  - NAUSEA [None]
  - ENCEPHALOPATHY [None]
  - TOXICITY TO VARIOUS AGENTS [None]
  - ACUTE HEPATIC FAILURE [None]
  - DECEREBRATION [None]
  - BRAIN OEDEMA [None]
  - CONFUSIONAL STATE [None]
  - UNRESPONSIVE TO STIMULI [None]
  - IRRITABILITY [None]
  - AGITATION [None]
  - INTRACRANIAL PRESSURE INCREASED [None]
